FAERS Safety Report 24192246 (Version 1)
Quarter: 2024Q3

REPORT INFORMATION
  Report Type: Spontaneous
  Country: US (occurrence: US)
  Receive Date: 20240809
  Receipt Date: 20240809
  Transmission Date: 20241017
  Serious: No
  Sender: PRINSTON PHARMACEUTICAL
  Company Number: US-PRINSTON PHARMACEUTICAL INC.-2024PRN00197

PATIENT
  Sex: Female

DRUGS (1)
  1. DIMETHYL FUMARATE [Suspect]
     Active Substance: DIMETHYL FUMARATE
     Dosage: UNK

REACTIONS (3)
  - Nausea [Unknown]
  - Vomiting [Unknown]
  - Diarrhoea [Unknown]
